FAERS Safety Report 7163242-0 (Version None)
Quarter: 2010Q4

REPORT INFORMATION
  Report Type: 
  Country: None (occurrence: None)
  Receive Date: 20101215
  Receipt Date: 20100318
  Transmission Date: 20110411
  Serious: Yes (Other)
  Sender: FDA-Public Use
  Company Number: DE-PFIZER INC-2010035392

PATIENT
  Sex: Male

DRUGS (14)
  1. LYRICA [Suspect]
     Indication: NEURALGIA
     Dosage: 50MG MORNING, 25MG EVENING
     Route: 048
  2. LORATADINE [Concomitant]
     Dosage: UNK
  3. AARANE [Concomitant]
     Dosage: UNK
  4. DECORTIN [Concomitant]
     Dosage: UNK
  5. VENOFER [Concomitant]
     Dosage: UNK
  6. MYFORTIC [Concomitant]
     Dosage: UNK
  7. ENALAGAMMA [Concomitant]
     Dosage: UNK
  8. SANDIMMUNE [Concomitant]
     Dosage: UNK
  9. OMEPRAZOLE [Concomitant]
     Dosage: UNK
  10. ROCALTROL [Concomitant]
     Dosage: UNK
  11. TORASEMIDE [Concomitant]
     Dosage: UNK
  12. MOXONIDINE [Concomitant]
     Dosage: UNK
  13. EPOETIN BETA [Concomitant]
     Dosage: UNK
  14. AMLODIPINE [Concomitant]
     Dosage: UNK

REACTIONS (2)
  - CONVULSION [None]
  - HYPONATRAEMIA [None]
